FAERS Safety Report 5765322-0 (Version None)
Quarter: 2008Q2

REPORT INFORMATION
  Report Type: 
  Country: None (occurrence: None)
  Receive Date: 20080609
  Receipt Date: 20080609
  Transmission Date: 20081010
  Serious: No
  Sender: FDA-Public Use
  Company Number: None

PATIENT
  Age: 55 Year
  Sex: Male
  Weight: 79.3795 kg

DRUGS (4)
  1. CYMBALTA [Suspect]
     Indication: ANXIETY
     Dosage: 30 MG  ONCE A DAY PO
     Route: 048
     Dates: start: 20080526, end: 20080606
  2. CYMBALTA [Suspect]
     Indication: DEPRESSION
     Dosage: 30 MG  ONCE A DAY PO
     Route: 048
     Dates: start: 20080526, end: 20080606
  3. WWLLBUTRIN [Concomitant]
  4. XANAX [Concomitant]

REACTIONS (5)
  - ABDOMINAL PAIN [None]
  - CONSTIPATION [None]
  - DYSURIA [None]
  - FATIGUE [None]
  - NIGHT SWEATS [None]
